FAERS Safety Report 10399097 (Version 1)
Quarter: 2014Q3

REPORT INFORMATION
  Report Type: Spontaneous
  Country: BR (occurrence: BR)
  Receive Date: 20140821
  Receipt Date: 20140821
  Transmission Date: 20150326
  Serious: Yes (Death, Life-Threatening, Hospitalization, Other)
  Sender: FDA-Public Use
  Company Number: BR-WATSON-2014-17809

PATIENT
  Age: 55 Year
  Sex: Female

DRUGS (4)
  1. CLOMIPRAMINE (UNKNOWN) [Suspect]
     Active Substance: CLOMIPRAMINE
     Indication: INTENTIONAL OVERDOSE
  2. CLOMIPRAMINE (UNKNOWN) [Suspect]
     Active Substance: CLOMIPRAMINE
     Indication: SUICIDE ATTEMPT
     Dosage: 3000 MG, SINGLE (120 PILLS OF 25 MG)
     Route: 048
  3. CLOMIPRAMINE (UNKNOWN) [Suspect]
     Active Substance: CLOMIPRAMINE
     Indication: DEPRESSION
  4. FLUOXETINE [Concomitant]
     Active Substance: FLUOXETINE\FLUOXETINE HYDROCHLORIDE
     Indication: DEPRESSION
     Dosage: UNK
     Route: 065

REACTIONS (15)
  - Intentional overdose [Fatal]
  - Hypotension [Unknown]
  - Dehydration [Unknown]
  - Brain injury [Fatal]
  - Cardiac arrest [Recovered/Resolved]
  - Metabolic acidosis [Unknown]
  - Dry mouth [Unknown]
  - Transaminases increased [Unknown]
  - Completed suicide [Fatal]
  - Rhabdomyolysis [Unknown]
  - Eye movement disorder [Not Recovered/Not Resolved]
  - Sinus bradycardia [Recovered/Resolved]
  - Electrocardiogram QRS complex shortened [Recovered/Resolved]
  - Hypocalcaemia [Unknown]
  - Tremor [Recovered/Resolved]
